FAERS Safety Report 4944975-0 (Version None)
Quarter: 2006Q1

REPORT INFORMATION
  Report Type: 
  Country: None (occurrence: None)
  Receive Date: 20060117
  Receipt Date: 20050523
  Transmission Date: 20060701
  Serious: Yes (Other)
  Sender: FDA-Public Use
  Company Number: A03200501587

PATIENT
  Sex: Female
  Weight: 121.564 kg

DRUGS (1)
  1. PLAVIX [Suspect]
     Indication: STENT PLACEMENT
     Dosage: 300 MG LOADING DOSE FOLLOWED BY 75 MG QD THEREAFTER - ORAL
     Route: 048

REACTIONS (2)
  - DRUG INEFFECTIVE [None]
  - STENT OCCLUSION [None]
